FAERS Safety Report 7625930-9 (Version None)
Quarter: 2011Q3

REPORT INFORMATION
  Report Type: 
  Country: None (occurrence: None)
  Receive Date: 20110721
  Receipt Date: 20110721
  Transmission Date: 20111222
  Serious: Yes (Life-Threatening, Disabling, Other)
  Sender: FDA-Public Use
  Company Number: None

PATIENT
  Sex: Male
  Weight: 84.368 kg

DRUGS (1)
  1. KLONOPIN [Suspect]
     Indication: PANIC ATTACK
     Dosage: 2 MG
     Route: 048
     Dates: start: 20060101, end: 20110719

REACTIONS (3)
  - AMNESIA [None]
  - SUICIDE ATTEMPT [None]
  - AGGRESSION [None]
